FAERS Safety Report 7387172-4 (Version None)
Quarter: 2011Q1

REPORT INFORMATION
  Report Type: 
  Country: None (occurrence: None)
  Receive Date: 20110331
  Receipt Date: 20110324
  Transmission Date: 20110831
  Serious: Yes (Hospitalization)
  Sender: FDA-Public Use
  Company Number: B0700807A

PATIENT
  Sex: Male

DRUGS (8)
  1. VALTREX [Suspect]
     Indication: HERPES ZOSTER
     Dosage: 500MG THREE TIMES PER DAY
     Route: 048
     Dates: start: 20110212, end: 20110213
  2. PIRMENOL HYDROCHLORIDE [Concomitant]
     Indication: TACHYARRHYTHMIA
     Route: 048
  3. BLOPRESS [Concomitant]
     Indication: HYPERTENSION
     Route: 048
  4. CALTAN [Concomitant]
     Indication: BLOOD PHOSPHORUS INCREASED
     Dosage: 500MG PER DAY
     Route: 048
  5. TAKEPRON [Concomitant]
     Dosage: 15MG PER DAY
     Route: 048
  6. RENAGEL [Concomitant]
     Indication: BLOOD PHOSPHORUS INCREASED
     Route: 048
  7. WARFARIN [Concomitant]
     Indication: HEART VALVE OPERATION
     Route: 048
  8. ACYCLOVIR [Suspect]
     Indication: HERPES ZOSTER
     Dosage: 600MG PER DAY
     Dates: start: 20110211

REACTIONS (4)
  - DEPRESSED LEVEL OF CONSCIOUSNESS [None]
  - DYSARTHRIA [None]
  - ASTHENIA [None]
  - OVERDOSE [None]
